FAERS Safety Report 23408013 (Version 2)
Quarter: 2024Q1

REPORT INFORMATION
  Report Type: Spontaneous
  Country: AU (occurrence: AU)
  Receive Date: 20240117
  Receipt Date: 20240205
  Transmission Date: 20240410
  Serious: Yes (Hospitalization, Other)
  Sender: FDA-Public Use
  Company Number: AU-IPSEN Group, Research and Development-2024-00581

PATIENT
  Age: 6 Year
  Sex: Male

DRUGS (2)
  1. INCRELEX [Suspect]
     Active Substance: MECASERMIN
     Indication: Laron syndrome
     Route: 058
     Dates: start: 20221025
  2. INCRELEX [Suspect]
     Active Substance: MECASERMIN
     Indication: Off label use

REACTIONS (4)
  - Hypoglycaemia [Recovered/Resolved]
  - Papilloedema [Recovering/Resolving]
  - Rash [Recovered/Resolved]
  - Off label use [Unknown]

NARRATIVE: CASE EVENT DATE: 20221025
